FAERS Safety Report 6385664-8 (Version None)
Quarter: 2009Q4

REPORT INFORMATION
  Report Type: 
  Country: None (occurrence: None)
  Receive Date: 20091002
  Receipt Date: 20081023
  Transmission Date: 20100525
  Serious: No
  Sender: FDA-Public Use
  Company Number: US-ASTRAZENECA-2008UW23850

PATIENT
  Age: 47 Year
  Sex: Female

DRUGS (2)
  1. ARIMIDEX [Suspect]
     Route: 048
     Dates: start: 20070101, end: 20080701
  2. ARIMIDEX [Suspect]
     Route: 048
     Dates: start: 20081022

REACTIONS (2)
  - RASH [None]
  - TENDONITIS [None]
